FAERS Safety Report 5214713-5 (Version None)
Quarter: 2007Q1

REPORT INFORMATION
  Report Type: 
  Country: None (occurrence: None)
  Receive Date: 20070117
  Receipt Date: 20070102
  Transmission Date: 20070707
  Serious: Yes (Other)
  Sender: FDA-Public Use
  Company Number: GB-1160218

PATIENT
  Age: 63 Year
  Sex: Female

DRUGS (2)
  1. AZOPT [Suspect]
     Indication: GLAUCOMA
     Dosage: EYE DROPS, SOLUTION 1 GTT BID OPHTHALMIC
     Route: 047
     Dates: start: 20060726, end: 20060824
  2. KETOPROFEN [Concomitant]

REACTIONS (4)
  - BONE PAIN [None]
  - MOVEMENT DISORDER [None]
  - MUSCULOSKELETAL DISCOMFORT [None]
  - PAIN IN EXTREMITY [None]
